FAERS Safety Report 6962079-2 (Version None)
Quarter: 2010Q3

REPORT INFORMATION
  Report Type: 
  Country: None (occurrence: None)
  Receive Date: 20100902
  Receipt Date: 20100823
  Transmission Date: 20110219
  Serious: Yes (Life-Threatening, Hospitalization, Other)
  Sender: FDA-Public Use
  Company Number: JP-SANOFI-AVENTIS-2010SA050401

PATIENT
  Age: 65 Year
  Sex: Female
  Weight: 45 kg

DRUGS (11)
  1. OXALIPLATIN [Suspect]
     Indication: RECTAL CANCER
     Route: 041
     Dates: start: 20100723, end: 20100723
  2. CALCIUM LEVOFOLINATE [Suspect]
     Indication: RECTAL CANCER
     Route: 041
     Dates: start: 20100723, end: 20100723
  3. FLUOROURACIL [Suspect]
     Indication: RECTAL CANCER
     Route: 040
     Dates: start: 20100723, end: 20100723
  4. FLUOROURACIL [Suspect]
     Route: 041
     Dates: start: 20100723, end: 20100723
  5. DEXAMETHASONE SODIUM PHOSPHATE [Concomitant]
     Indication: PREMEDICATION
     Route: 041
     Dates: start: 20100723, end: 20100723
  6. GRANISETRON HCL [Concomitant]
     Indication: PREMEDICATION
     Route: 041
     Dates: start: 20100723, end: 20100723
  7. DEXTROSE [Concomitant]
     Route: 041
  8. SOLDEM 3A [Concomitant]
     Route: 041
  9. ISOTONIC SOLUTIONS [Concomitant]
     Route: 041
  10. ELECTROLYTE SOLUTIONS [Concomitant]
     Route: 041
  11. ZOMETA [Concomitant]
     Route: 041

REACTIONS (4)
  - CARDIAC ARREST [None]
  - HYPONATRAEMIA [None]
  - INAPPROPRIATE ANTIDIURETIC HORMONE SECRETION [None]
  - NAUSEA [None]
